FAERS Safety Report 9511099 (Version 1)
Quarter: 2013Q3

REPORT INFORMATION
  Report Type: Spontaneous
  Country: US (occurrence: None)
  Receive Date: 20130909
  Receipt Date: 20130909
  Transmission Date: 20140515
  Serious: Yes (Other)
  Sender: FDA-Public Use
  Company Number: None

PATIENT
  Age: 44 Year
  Sex: Female

DRUGS (1)
  1. BETASERON [Suspect]
     Indication: MULTIPLE SCLEROSIS
     Dosage: 1 ML (0.25MG) EOD SUBCUTANEOUSLY
     Route: 058
     Dates: start: 20130217

REACTIONS (4)
  - Seborrhoeic dermatitis [None]
  - Depression [None]
  - Urinary tract infection [None]
  - Anger [None]
